FAERS Safety Report 5399328-0 (Version None)
Quarter: 2007Q3

REPORT INFORMATION
  Report Type: 
  Country: None (occurrence: None)
  Receive Date: 20070727
  Receipt Date: 20070716
  Transmission Date: 20080115
  Serious: Yes (Hospitalization)
  Sender: FDA-Public Use
  Company Number: US-ROCHE-437220

PATIENT
  Age: 53 Year
  Sex: Female
  Weight: 65.8 kg

DRUGS (5)
  1. PEG-INTERFERON A-2A (RO 25-8310) [Suspect]
     Route: 058
     Dates: start: 20060120
  2. RIBAVIRIN [Suspect]
     Route: 048
     Dates: start: 20060120
  3. ZOLOFT [Concomitant]
     Indication: DEPRESSION
     Dosage: DAILY.
     Route: 048
     Dates: start: 20051028
  4. COZAAR [Concomitant]
     Indication: HYPERTENSION
     Dosage: DAILY.
     Route: 048
     Dates: start: 20050121, end: 20060207
  5. XANAX [Concomitant]
     Indication: ANXIETY
     Dosage: REPORTED AS ORALS.
     Route: 048
     Dates: start: 19960101

REACTIONS (2)
  - MYOCARDIAL ISCHAEMIA [None]
  - NON-CARDIAC CHEST PAIN [None]
